FAERS Safety Report 8961543 (Version 1)
Quarter: 2012Q4

REPORT INFORMATION
  Report Type: 
  Country: US (occurrence: US)
  Receive Date: 20121213
  Receipt Date: 20121213
  Transmission Date: 20130627
  Serious: Yes (Hospitalization)
  Sender: FDA-Public Use
  Company Number: US-BAYER-2012-129905

PATIENT
  Age: 26 Year
  Sex: Female
  Weight: 102 kg

DRUGS (7)
  1. YASMIN [Suspect]
  2. MOTRIN [Concomitant]
     Indication: FEVER
     Dosage: 600 mg, TID
  3. MOTRIN [Concomitant]
     Indication: PAIN
  4. VICODIN [Concomitant]
     Indication: PAIN
     Dosage: 5/500 mg; 1-2 tablets every 6 hours
  5. ADVIL [Concomitant]
  6. TYLENOL [Concomitant]
  7. LORTAB [Concomitant]

REACTIONS (1)
  - Deep vein thrombosis [None]
